FAERS Safety Report 8015384-5 (Version None)
Quarter: 2011Q4

REPORT INFORMATION
  Report Type: 
  Country: None (occurrence: None)
  Receive Date: 20111230
  Receipt Date: 20111216
  Transmission Date: 20120403
  Serious: Yes (Other)
  Sender: FDA-Public Use
  Company Number: GB-RANBAXY-2011R1-51336

PATIENT
  Age: 35 Year
  Sex: Female

DRUGS (8)
  1. CARBAMAZEPINE [Suspect]
     Indication: CONVULSION
     Dosage: 200 MG, BID
     Route: 065
  2. TOPIRAMATE [Suspect]
     Indication: CONVULSION
     Dosage: UNK
     Route: 065
  3. VIMPAT [Suspect]
     Dosage: 100 MG, BID
     Route: 065
  4. VIMPAT [Suspect]
     Dosage: 150 MG, BID
     Route: 065
  5. VIMPAT [Suspect]
     Dosage: UNK
     Route: 065
  6. CLOBAZAM [Suspect]
     Indication: CONVULSION
     Dosage: 10 MG, QD
     Route: 065
  7. KEPPRA [Suspect]
     Indication: CONVULSION
     Dosage: 1500 MG, BID
     Route: 065
  8. VIMPAT [Suspect]
     Indication: CONVULSION
     Dosage: 50 MG, BID
     Route: 065

REACTIONS (12)
  - ANXIETY [None]
  - CONVULSION [None]
  - TEARFULNESS [None]
  - FATIGUE [None]
  - URINARY INCONTINENCE [None]
  - MEMORY IMPAIRMENT [None]
  - ABNORMAL BEHAVIOUR [None]
  - SLOW SPEECH [None]
  - STEVENS-JOHNSON SYNDROME [None]
  - DIPLOPIA [None]
  - AURA [None]
  - SELF ESTEEM DECREASED [None]
